FAERS Safety Report 24087830 (Version 1)
Quarter: 2024Q3

REPORT INFORMATION
  Report Type: Spontaneous
  Country: CN (occurrence: CN)
  Receive Date: 20240715
  Receipt Date: 20240715
  Transmission Date: 20241016
  Serious: Yes (Other)
  Sender: BEIGENE
  Company Number: CN-BEIGENE-BGN-2024-010487

PATIENT

DRUGS (6)
  1. TISLELIZUMAB [Suspect]
     Active Substance: TISLELIZUMAB
     Indication: Squamous cell carcinoma of lung
     Dosage: 200 MILLIGRAM
     Dates: start: 20240106
  2. TISLELIZUMAB [Suspect]
     Active Substance: TISLELIZUMAB
     Dosage: 200 MILLIGRAM
     Route: 041
     Dates: start: 20240201
  3. CISPLATIN [Suspect]
     Active Substance: CISPLATIN
     Indication: Squamous cell carcinoma of lung
     Dosage: 120 MILLIGRAM
     Dates: start: 20240107
  4. CISPLATIN [Suspect]
     Active Substance: CISPLATIN
     Dosage: 120 MILLIGRAM
     Dates: start: 20240202
  5. PACLITAXEL [Concomitant]
     Active Substance: PACLITAXEL
     Indication: Squamous cell carcinoma of lung
     Dosage: 400 MILLIGRAM
     Dates: start: 20240107
  6. PACLITAXEL [Concomitant]
     Active Substance: PACLITAXEL
     Dosage: 400 MILLIGRAM
     Dates: start: 20240202

REACTIONS (2)
  - Myasthenic syndrome [Recovering/Resolving]
  - Myocarditis [Recovering/Resolving]

NARRATIVE: CASE EVENT DATE: 20240221
